FAERS Safety Report 8362622 (Version 2)
Quarter: 2012Q4

REPORT INFORMATION
  Report Type: 
  Country: US (occurrence: US)
  Receive Date: 20120130
  Receipt Date: 20121012
  Transmission Date: 20130627
  Serious: Yes (Death, Other)
  Sender: FDA-Public Use
  Company Number: US-ELI_LILLY_AND_COMPANY-US201201006912

PATIENT
  Sex: Male
  Weight: 130.16 kg

DRUGS (1)
  1. GEMZAR [Suspect]
     Indication: LUNG NEOPLASM MALIGNANT
     Dosage: 1000 mg, other
     Route: 042
     Dates: start: 20110721, end: 20110923

REACTIONS (3)
  - Malignant neoplasm progression [Fatal]
  - Cardiac disorder [Unknown]
  - Surgery [Unknown]
